FAERS Safety Report 25792017 (Version 1)
Quarter: 2025Q3

REPORT INFORMATION
  Report Type: Spontaneous
  Country: US (occurrence: None)
  Receive Date: 20250911
  Receipt Date: 20250911
  Transmission Date: 20251021
  Serious: Yes (Hospitalization)
  Sender: FDA-CTU
  Company Number: None

PATIENT
  Sex: Female

DRUGS (2)
  1. VYNDAMAX [Suspect]
     Active Substance: TAFAMIDIS
     Dosage: FREQUENCY : DAILY;?
     Route: 048
     Dates: start: 20250314
  2. COLESTIPOL TAB 1GM [Concomitant]

REACTIONS (5)
  - Atrial fibrillation [None]
  - Complication associated with device [None]
  - Sepsis [None]
  - Asthenia [None]
  - Mobility decreased [None]
